FAERS Safety Report 17984448 (Version 1)
Quarter: 2020Q3

REPORT INFORMATION
  Report Type: Spontaneous
  Country: US (occurrence: US)
  Receive Date: 20200706
  Receipt Date: 20200706
  Transmission Date: 20201103
  Serious: Yes (Other)
  Sender: FDA-Public Use
  Company Number: US-MYLANLABS-2020M1060074

PATIENT
  Sex: Female
  Weight: 62 kg

DRUGS (4)
  1. ROPINIROLE. [Suspect]
     Active Substance: ROPINIROLE
     Indication: MUSCLE SPASMS
     Dosage: 1 DOSAGE FORM, HS  (DAILY AT BEDTIME)
     Route: 048
  2. DICLOFENAC [Concomitant]
     Active Substance: DICLOFENAC
     Dosage: UNK
  3. FAMOTIDINE. [Concomitant]
     Active Substance: FAMOTIDINE
     Dosage: UNK
  4. GRALISE [Concomitant]
     Active Substance: GABAPENTIN
     Dosage: UNK

REACTIONS (4)
  - Intestinal obstruction [Unknown]
  - Drug ineffective for unapproved indication [Unknown]
  - Sleep paralysis [Unknown]
  - Constipation [Unknown]
